FAERS Safety Report 9803810 (Version 1)
Quarter: 2014Q1

REPORT INFORMATION
  Report Type: Spontaneous
  Country: DE (occurrence: DE)
  Receive Date: 20140108
  Receipt Date: 20140108
  Transmission Date: 20141002
  Serious: Yes (Death, Other)
  Sender: FDA-Public Use
  Company Number: DE-BAYER-2014-001521

PATIENT
  Age: 21 Year
  Sex: Female

DRUGS (3)
  1. MOXIFLOXACIN ORAL [Suspect]
  2. PAZOPANIB [Suspect]
  3. MOXIFLOXACIN [Concomitant]

REACTIONS (11)
  - Pericardial effusion [Fatal]
  - Multi-organ failure [None]
  - Cardiac tamponade [None]
  - Pleural effusion [None]
  - Cardiomegaly [None]
  - Hepatorenal syndrome [None]
  - Pneumonia [None]
  - Renal failure chronic [None]
  - Hepatic failure [None]
  - Fatigue [None]
  - Hepatic function abnormal [None]
